FAERS Safety Report 13470208 (Version 2)
Quarter: 2017Q2

REPORT INFORMATION
  Report Type: Spontaneous
  Country: US (occurrence: US)
  Receive Date: 20170423
  Receipt Date: 20170526
  Transmission Date: 20170830
  Serious: No
  Sender: FDA-Public Use
  Company Number: US-ASTRAZENECA-2017SE39898

PATIENT
  Sex: Female
  Weight: 62.6 kg

DRUGS (1)
  1. SYMBICORT [Suspect]
     Active Substance: BUDESONIDE\FORMOTEROL FUMARATE DIHYDRATE
     Indication: CHRONIC OBSTRUCTIVE PULMONARY DISEASE
     Dosage: 160/4.5 MCG ONE INHALATION TWICE A DAY
     Route: 055

REACTIONS (9)
  - Product quality issue [Unknown]
  - Hypersensitivity [Unknown]
  - Oropharyngeal pain [Unknown]
  - Cardiac failure congestive [Unknown]
  - Off label use [Unknown]
  - Malaise [Unknown]
  - Sinus disorder [Unknown]
  - Headache [Unknown]
  - Product use issue [Unknown]
